FAERS Safety Report 12742027 (Version 1)
Quarter: 2016Q3

REPORT INFORMATION
  Report Type: Report from Study
  Country: US (occurrence: US)
  Receive Date: 20160914
  Receipt Date: 20160914
  Transmission Date: 20161109
  Serious: Yes (Other)
  Sender: FDA-Public Use
  Company Number: US-ABBVIE-16K-163-1720627-00

PATIENT
  Age: 36 Year
  Sex: Female

DRUGS (5)
  1. MERCAPTOPURINE. [Concomitant]
     Active Substance: MERCAPTOPURINE
     Indication: CROHN^S DISEASE
  2. PROTONIX [Concomitant]
     Active Substance: PANTOPRAZOLE SODIUM
     Indication: GASTROOESOPHAGEAL REFLUX DISEASE
  3. LOMOTIL [Concomitant]
     Active Substance: ATROPINE SULFATE\DIPHENOXYLATE HYDROCHLORIDE
     Indication: DIARRHOEA
  4. IMODIUM [Concomitant]
     Active Substance: LOPERAMIDE HYDROCHLORIDE
     Indication: DIARRHOEA
  5. HUMIRA [Suspect]
     Active Substance: ADALIMUMAB
     Indication: CROHN^S DISEASE
     Route: 058
     Dates: start: 200802

REACTIONS (15)
  - Short-bowel syndrome [Not Recovered/Not Resolved]
  - Normal newborn [Unknown]
  - Pre-eclampsia [Recovered/Resolved]
  - Headache [Recovered/Resolved]
  - Cervix dystocia [Recovered/Resolved]
  - Tachycardia [Recovered/Resolved]
  - Wound infection [Recovered/Resolved]
  - Fistula [Recovered/Resolved]
  - Restless legs syndrome [Not Recovered/Not Resolved]
  - Blood pressure increased [Recovered/Resolved]
  - Abscess intestinal [Recovered/Resolved]
  - Adhesion [Recovered/Resolved]
  - Abscess [Recovered/Resolved]
  - Exposure during pregnancy [Unknown]
  - Crohn^s disease [Recovered/Resolved]

NARRATIVE: CASE EVENT DATE: 201011
